FAERS Safety Report 7762152-5 (Version None)
Quarter: 2011Q3

REPORT INFORMATION
  Report Type: 
  Country: None (occurrence: None)
  Receive Date: 20110920
  Receipt Date: 20110112
  Transmission Date: 20111222
  Serious: Yes (Death)
  Sender: FDA-Public Use
  Company Number: ID-ROCHE-747320

PATIENT
  Age: 25 Year
  Sex: Female

DRUGS (15)
  1. METAMIZOL [Concomitant]
     Dates: start: 20100115, end: 20100119
  2. VIT B COMPLEX [Concomitant]
     Dates: start: 20100118, end: 20100119
  3. OSELTAMIVIR [Suspect]
     Indication: AVIAN INFLUENZA
     Route: 065
     Dates: start: 20100120, end: 20100121
  4. RANITIDINE [Concomitant]
     Dates: start: 20100120, end: 20100125
  5. BISOLVON [Concomitant]
     Dates: start: 20100120
  6. SUCRALFAT [Concomitant]
     Dates: start: 20100122
  7. OBH [Concomitant]
     Dates: start: 20100121
  8. FLUMUCIL [Concomitant]
     Dates: start: 20100123
  9. CEFTRIAXONE SODIUM [Suspect]
     Route: 065
     Dates: start: 20100121, end: 20100123
  10. MEROPENEM [Concomitant]
     Dates: start: 20100123, end: 20100124
  11. ONDANSETRON [Concomitant]
     Dates: start: 20100120, end: 20100123
  12. MORPHINE [Concomitant]
     Dates: start: 20100123
  13. AZITHROMYCIN [Concomitant]
     Dates: start: 20100120, end: 20100121
  14. ACETAMINOPHEN [Concomitant]
     Indication: PROPHYLAXIS
     Dates: start: 20100115, end: 20100123
  15. AMOXICILLIN [Concomitant]
     Dates: start: 20100115, end: 20100119

REACTIONS (1)
  - ACUTE RESPIRATORY DISTRESS SYNDROME [None]
